FAERS Safety Report 21611425 (Version 1)
Quarter: 2022Q4

REPORT INFORMATION
  Report Type: Spontaneous
  Country: IT (occurrence: IT)
  Receive Date: 20221117
  Receipt Date: 20221117
  Transmission Date: 20230112
  Serious: Yes (Death, Life-Threatening)
  Sender: FDA-Public Use
  Company Number: IT-PADAGIS-2022PAD00959

PATIENT

DRUGS (6)
  1. TESTOSTERONE CYPIONATE [Suspect]
     Active Substance: TESTOSTERONE CYPIONATE
     Indication: Performance enhancing product use
     Dosage: UNK
     Route: 065
  2. TORSEMIDE [Suspect]
     Active Substance: TORSEMIDE
     Indication: Performance enhancing product use
     Dosage: UNK
     Route: 065
  3. CLENBUTEROL HYDROCHLORIDE [Suspect]
     Active Substance: CLENBUTEROL HYDROCHLORIDE
     Indication: Performance enhancing product use
     Dosage: UNK
     Route: 065
  4. LEVOTHYROXINE SODIUM [Suspect]
     Active Substance: LEVOTHYROXINE SODIUM
     Indication: Performance enhancing product use
     Dosage: UNK
     Route: 065
  5. HALOTESTIN [Suspect]
     Active Substance: FLUOXYMESTERONE
     Indication: Performance enhancing product use
     Dosage: UNK
     Route: 065
  6. LASIX [Suspect]
     Active Substance: FUROSEMIDE
     Indication: Performance enhancing product use
     Dosage: UNK
     Route: 065

REACTIONS (6)
  - Death [Fatal]
  - Intentional product misuse [Unknown]
  - Toxicity to various agents [Unknown]
  - Cardiotoxicity [Fatal]
  - Hepatotoxicity [Unknown]
  - Drug abuse [Unknown]
